FAERS Safety Report 4978371-7 (Version None)
Quarter: 2006Q2

REPORT INFORMATION
  Report Type: 
  Country: None (occurrence: None)
  Receive Date: 20060420
  Receipt Date: 20060410
  Transmission Date: 20061013
  Serious: Yes (Other)
  Sender: FDA-Public Use
  Company Number: IE-BRISTOL-MYERS SQUIBB COMPANY-13341912

PATIENT
  Age: 60 Year
  Sex: Female

DRUGS (3)
  1. CYCLOPHOSPHAMIDE [Suspect]
     Indication: BREAST CANCER
  2. METHOTREXATE [Suspect]
     Indication: BREAST CANCER
  3. FLUOROURACIL [Suspect]
     Indication: BREAST CANCER

REACTIONS (1)
  - EOSINOPHILIC PUSTULAR FOLLICULITIS [None]
